FAERS Safety Report 7634920-1 (Version None)
Quarter: 2011Q3

REPORT INFORMATION
  Report Type: 
  Country: None (occurrence: None)
  Receive Date: 20110726
  Receipt Date: 20110712
  Transmission Date: 20111222
  Serious: Yes (Hospitalization, Other)
  Sender: FDA-Public Use
  Company Number: US-BAYER-201017378NA

PATIENT
  Age: 23 Year
  Sex: Female
  Weight: 77.098 kg

DRUGS (8)
  1. YASMIN [Suspect]
     Indication: CONTRACEPTION
     Dosage: UNK UNK, UNK
     Route: 048
     Dates: start: 20060301, end: 20090301
  2. CYMBALTA [Concomitant]
     Dosage: 30 MG, DAY
     Route: 048
  3. TOPAMAX [Concomitant]
     Dosage: 50 MG, UNK
     Route: 048
  4. PANTOPRAZOLE [Concomitant]
     Dosage: 40 MG, DAY
     Route: 048
  5. IBUPROFEN [Concomitant]
  6. ZOLPIDEM TARTRATE [Concomitant]
     Dosage: 10 MG, DAY
     Route: 048
  7. CITALOPRAM HYDROBROMIDE [Concomitant]
     Dosage: 40 MG, DAY
     Route: 048
  8. YAZ [Suspect]
     Indication: CONTRACEPTION
     Dosage: UNK
     Dates: start: 20090301, end: 20090901

REACTIONS (4)
  - GALLBLADDER DISORDER [None]
  - CHOLECYSTITIS CHRONIC [None]
  - CHOLESTEROSIS [None]
  - ABDOMINAL PAIN [None]
